FAERS Safety Report 8962743 (Version 1)
Quarter: 2012Q4

REPORT INFORMATION
  Report Type: Report from Study
  Country: JP (occurrence: JP)
  Receive Date: 20121213
  Receipt Date: 20121213
  Transmission Date: 20130627
  Serious: Yes (Hospitalization)
  Sender: FDA-Public Use
  Company Number: JP-PFIZER INC-2012308023

PATIENT
  Age: 46 Year
  Sex: Female
  Weight: 52 kg

DRUGS (17)
  1. MEDROL [Suspect]
     Indication: PROPHYLAXIS AGAINST RENAL TRANSPLANT REJECTION
     Dosage: 40 mg, 1x/day
     Route: 048
     Dates: start: 20090324, end: 2009
  2. MEDROL [Suspect]
     Dosage: 8 mg, 1x/day
     Route: 048
     Dates: start: 2009, end: 20090930
  3. MEDROL [Suspect]
     Dosage: 4 mg, 1x/day
     Route: 048
     Dates: start: 20090904
  4. MYCOPHENOLATE MOFETIL [Suspect]
     Indication: PROPHYLAXIS AGAINST RENAL TRANSPLANT REJECTION
     Dosage: UNK
     Route: 048
     Dates: start: 20090727
  5. SIMULECT [Suspect]
     Indication: PROPHYLAXIS AGAINST RENAL TRANSPLANT REJECTION
     Dosage: 20 mg, 1x/day
     Route: 042
     Dates: start: 20090727, end: 20090727
  6. SIMULECT [Suspect]
     Dosage: 20 mg, 1x/day
     Route: 042
     Dates: start: 20090731, end: 20090731
  7. NEORAL [Suspect]
     Indication: PROPHYLAXIS AGAINST RENAL TRANSPLANT REJECTION
     Dosage: 400 mg, 1x/day
     Route: 048
     Dates: start: 20090729
  8. NEORAL [Suspect]
     Dosage: 300 mg, 1x/day
     Route: 048
     Dates: start: 2009, end: 20090901
  9. NEORAL [Suspect]
     Dosage: 275 mg, 1x/day
     Route: 048
     Dates: start: 20090902, end: 20090902
  10. NEORAL [Suspect]
     Dosage: 250 mg, 1x/day
     Route: 048
     Dates: start: 20090903
  11. POVIDONE-IODINE [Concomitant]
     Dosage: UNK
     Route: 049
     Dates: start: 20090724
  12. ALTAT [Concomitant]
     Dosage: 75 mg, 1x/day
     Route: 048
     Dates: start: 20090727
  13. PERSANTIN [Concomitant]
     Dosage: 3000 mg, 1x/day
     Route: 048
     Dates: start: 20090728
  14. MAALOX [Concomitant]
     Dosage: 3.6 g, 1x/day
     Route: 048
     Dates: start: 20090728
  15. LIPITOR [Concomitant]
     Dosage: 10 mg, 1x/day
     Route: 048
     Dates: start: 20091027
  16. AMLODIN [Concomitant]
     Dosage: 5 mg, 1x/day
     Route: 048
     Dates: start: 20100422
  17. LENDORMIN [Concomitant]
     Dosage: 0.25 mg, 1x/day
     Route: 048
     Dates: start: 20090810

REACTIONS (2)
  - Pneumonia [Recovered/Resolved]
  - Cytomegalovirus test positive [Recovered/Resolved]
